FAERS Safety Report 9707822 (Version 1)
Quarter: 2013Q4

REPORT INFORMATION
  Report Type: Spontaneous
  Country: ES (occurrence: None)
  Receive Date: 20131121
  Receipt Date: 20131121
  Transmission Date: 20140711
  Serious: Yes (Death)
  Sender: FDA-Public Use
  Company Number: 2013P1021099

PATIENT
  Age: 75 Year
  Sex: Male

DRUGS (5)
  1. FLURAZEPAM [Suspect]
  2. DIAZEPAM [Suspect]
  3. VENLAFAXINE [Suspect]
  4. TRAMADOL [Suspect]
  5. CITALOPRAM [Suspect]

REACTIONS (5)
  - Completed suicide [None]
  - Pulmonary oedema [None]
  - Arteriosclerosis coronary artery [None]
  - Myocardial infarction [None]
  - Gastric haemorrhage [None]
